FAERS Safety Report 7232899 (Version 3)
Quarter: 2014Q2

REPORT INFORMATION
  Report Type: Spontaneous
  Country: US (occurrence: US)
  Receive Date: 20091229
  Receipt Date: 20140428
  Transmission Date: 20141212
  Serious: Yes (Hospitalization)
  Sender: FDA-Public Use
  Company Number: US-ALEXION-A200901099

PATIENT
  Age: 34 Year
  Sex: Female

DRUGS (4)
  1. SOLIRIS 300MG [Suspect]
     Indication: PAROXYSMAL NOCTURNAL HAEMOGLOBINURIA
     Dosage: 600 MG, QW
     Route: 042
     Dates: start: 20080207
  2. SOLIRIS 300MG [Suspect]
     Dosage: 900 MG, Q2W
     Dates: start: 20080306
  3. SOLIRIS 300MG [Suspect]
     Dosage: OFF SCHEDULE
     Route: 042
     Dates: start: 200811, end: 200812
  4. SOLIRIS 300MG [Suspect]
     Dosage: 900 MG, Q2W
     Route: 042
     Dates: start: 2009

REACTIONS (6)
  - Haemoglobin decreased [Unknown]
  - Asthenia [Recovering/Resolving]
  - Infection [Unknown]
  - Haemolysis [Unknown]
  - Upper respiratory tract infection [Unknown]
  - Fatigue [Unknown]
